FAERS Safety Report 5448961-6 (Version None)
Quarter: 2007Q3

REPORT INFORMATION
  Report Type: 
  Country: None (occurrence: None)
  Receive Date: 20070911
  Receipt Date: 20070905
  Transmission Date: 20080115
  Serious: Yes (Hospitalization, Other)
  Sender: FDA-Public Use
  Company Number: CA-ELI_LILLY_AND_COMPANY-CA200708004688

PATIENT
  Age: 62 Year
  Sex: Female

DRUGS (9)
  1. FORTEO [Suspect]
     Indication: OSTEOPOROSIS
     Dosage: 20 UG, DAILY (1/D)
     Route: 058
     Dates: start: 20070404
  2. METHADONE HCL [Concomitant]
     Dosage: UNK, UNK
  3. LIDOCAINE [Concomitant]
     Dosage: UNK, UNK
  4. FENTANYL [Concomitant]
     Dosage: UNK, UNK
  5. METHOTREXATE [Concomitant]
     Dosage: UNK, UNK
  6. CALTRATE [Concomitant]
     Dosage: UNK, UNK
  7. VITAMIN D [Concomitant]
     Dosage: UNK, UNK
  8. ANTIBIOTICS [Concomitant]
  9. KEFLEX /00145501/ [Concomitant]

REACTIONS (3)
  - MENINGITIS [None]
  - PAIN [None]
  - SURGERY [None]
